FAERS Safety Report 8515021-7 (Version None)
Quarter: 2012Q3

REPORT INFORMATION
  Report Type: 
  Country: None (occurrence: None)
  Receive Date: 20120717
  Receipt Date: 20120710
  Transmission Date: 20120928
  Serious: Yes (Death)
  Sender: FDA-Public Use
  Company Number: JP-ASTRAZENECA-2012SE47574

PATIENT
  Age: 94 Year
  Sex: Female
  Weight: 35 kg

DRUGS (3)
  1. ROPIVACAINE HYDROCHLORIDE [Suspect]
     Dosage: 2 MG/ML 4 CC/H
     Route: 053
  2. ROPIVACAINE HYDROCHLORIDE [Suspect]
     Indication: NERVE BLOCK
     Dosage: 2 MG/ML 8 CC/H
     Route: 065
  3. ROPIVACAINE HYDROCHLORIDE [Suspect]
     Dosage: 2 MG/ML 4 CC/H TO EACH SCIATIC NERVE
     Route: 053

REACTIONS (2)
  - MYOCARDIAL INFARCTION [None]
  - DEATH [None]
